FAERS Safety Report 23090994 (Version 1)
Quarter: 2023Q4

REPORT INFORMATION
  Report Type: Report from Study
  Country: BY (occurrence: BY)
  Receive Date: 20231020
  Receipt Date: 20231020
  Transmission Date: 20240109
  Serious: Yes (Life-Threatening, Other)
  Sender: FDA-Public Use
  Company Number: BY-MYLANLABS-2023M1109061

PATIENT
  Sex: Female
  Weight: 64.2 kg

DRUGS (8)
  1. PRETOMANID [Suspect]
     Active Substance: PRETOMANID
     Indication: Product used for unknown indication
     Dosage: 200 MILLIGRAM, DAILY
     Route: 048
     Dates: start: 20220222
  2. LINEZOLID [Suspect]
     Active Substance: LINEZOLID
     Indication: Product used for unknown indication
     Dosage: 300 MILLIGRAM, DAILY
     Route: 048
     Dates: start: 20220222
  3. BEDAQUILINE [Suspect]
     Active Substance: BEDAQUILINE
     Indication: Product used for unknown indication
     Dosage: 200 MILLIGRAM, 3XW
     Route: 048
     Dates: start: 20220222
  4. CLOFAZIMINE [Suspect]
     Active Substance: CLOFAZIMINE
     Indication: Product used for unknown indication
     Dosage: 100 MILLIGRAM, DAILY
     Route: 048
     Dates: start: 20220222
  5. METOPROLOL [Concomitant]
     Active Substance: METOPROLOL
     Indication: Hypertension
     Dosage: 50 MILLIGRAM, DAILY
     Route: 048
     Dates: start: 20220214
  6. METOPROLOL [Concomitant]
     Active Substance: METOPROLOL
     Indication: Myocardial ischaemia
  7. INDAPAMIDE HEMIHYDRATE [Concomitant]
     Active Substance: INDAPAMIDE HEMIHYDRATE
     Indication: Hypertension
     Dosage: 1.5 MILLIGRAM, DAILY
     Route: 048
     Dates: start: 20220502
  8. PYRIDOXINE HYDROCHLORIDE [Concomitant]
     Active Substance: PYRIDOXINE HYDROCHLORIDE
     Indication: Prophylaxis
     Dosage: 100 MILLIGRAM, DAILY
     Route: 048
     Dates: start: 20220222, end: 20220808

REACTIONS (1)
  - Acute kidney injury [Recovered/Resolved]

NARRATIVE: CASE EVENT DATE: 20220619
